FAERS Safety Report 9886722 (Version 1)
Quarter: 2014Q1

REPORT INFORMATION
  Report Type: Spontaneous
  Country: ZA (occurrence: ZA)
  Receive Date: 20140210
  Receipt Date: 20140210
  Transmission Date: 20141002
  Serious: Yes (Other)
  Sender: FDA-Public Use
  Company Number: ZA-GILEAD-2014-0093854

PATIENT
  Age: 34 Year
  Sex: Male

DRUGS (23)
  1. TENOFOVIR DISOPROXIL FUMARATE [Suspect]
     Indication: ANTIRETROVIRAL THERAPY
     Dosage: UNK
     Dates: start: 201009
  2. TENOFOVIR DISOPROXIL FUMARATE [Suspect]
     Dosage: UNK
  3. TENOFOVIR DISOPROXIL FUMARATE [Suspect]
     Dosage: UNK
     Dates: start: 2012
  4. STAVUDINE [Concomitant]
     Indication: ANTIRETROVIRAL THERAPY
     Dosage: UNK
     Route: 065
     Dates: start: 200904, end: 201005
  5. LAMIVUDINE [Concomitant]
     Indication: ANTIRETROVIRAL THERAPY
     Dosage: UNK
     Dates: start: 201009
  6. LAMIVUDINE [Concomitant]
     Indication: ANTIRETROVIRAL THERAPY
     Dosage: UNK
     Route: 065
     Dates: start: 200904, end: 201005
  7. LAMIVUDINE [Concomitant]
     Dosage: UNK
  8. LAMIVUDINE [Concomitant]
     Dosage: UNK
     Dates: start: 2012
  9. LAMIVUDINE [Concomitant]
     Dosage: UNK
  10. EFAVIRENZ [Concomitant]
     Indication: ANTIRETROVIRAL THERAPY
     Dosage: UNK
     Dates: start: 201009
  11. EFAVIRENZ [Concomitant]
     Dosage: UNK
     Dates: start: 200904, end: 201005
  12. EFAVIRENZ [Concomitant]
     Dosage: UNK
  13. EFAVIRENZ [Concomitant]
     Dosage: UNK
     Dates: start: 2012
  14. KANAMYCIN [Concomitant]
  15. MOXIFLOXACIN [Concomitant]
  16. ETHIONAMIDE [Concomitant]
  17. TERIZIDONE [Concomitant]
  18. PYRAZINAMIDE [Concomitant]
  19. ISONIAZID [Concomitant]
  20. ZIDOVUDINE [Concomitant]
     Indication: ANTIRETROVIRAL THERAPY
  21. LOPINAVIR W/RITONAVIR [Concomitant]
     Indication: ANTIRETROVIRAL THERAPY
  22. COTRIMOXAZOLE [Concomitant]
  23. PYRIDOXINE [Concomitant]

REACTIONS (5)
  - Genotype drug resistance test positive [Unknown]
  - Genotype drug resistance test positive [Unknown]
  - Genotype drug resistance test positive [Unknown]
  - Genotype drug resistance test positive [Unknown]
  - Drug ineffective [Unknown]
